FAERS Safety Report 7215090-0 (Version None)
Quarter: 2011Q1

REPORT INFORMATION
  Report Type: 
  Country: None (occurrence: None)
  Receive Date: 20110107
  Receipt Date: 20100818
  Transmission Date: 20110831
  Serious: No
  Sender: FDA-Public Use
  Company Number: A0876512A

PATIENT
  Age: 69 Year
  Sex: Male

DRUGS (5)
  1. LOVAZA [Suspect]
     Dosage: 1CAP TWICE PER DAY
     Route: 048
     Dates: start: 20090101
  2. PROPYLTHIOURACIL [Concomitant]
  3. FUROSEMIDE [Concomitant]
  4. LOTREL [Concomitant]
  5. FEXOFENADINE HCL [Concomitant]

REACTIONS (6)
  - FEELING ABNORMAL [None]
  - MYALGIA [None]
  - FATIGUE [None]
  - ASTHENIA [None]
  - INFLUENZA LIKE ILLNESS [None]
  - PAIN [None]
